FAERS Safety Report 5109723-2 (Version None)
Quarter: 2006Q3

REPORT INFORMATION
  Report Type: 
  Country: None (occurrence: None)
  Receive Date: 20060918
  Receipt Date: 20060825
  Transmission Date: 20061208
  Serious: Yes (Hospitalization)
  Sender: FDA-Public Use
  Company Number: 2006-06-0414

PATIENT
  Age: 71 Year
  Sex: Male
  Weight: 57 kg

DRUGS (4)
  1. PEG-INTRON [Suspect]
     Indication: HEPATITIS C
     Dosage: 100 MCG; QW; SC;  80 MCG/WK; SC
     Route: 058
     Dates: start: 20050509, end: 20051011
  2. PEG-INTRON [Suspect]
     Indication: HEPATITIS C
     Dosage: 100 MCG; QW; SC;  80 MCG/WK; SC
     Route: 058
     Dates: start: 20051018, end: 20060511
  3. REBETOL [Suspect]
     Indication: HEPATITIS C
     Dosage: 600 MG, QD; PO
     Route: 048
     Dates: start: 20050509, end: 20060516
  4. EPADEL                                (ETHYL ICOSAPENTATE) (CON.) [Concomitant]

REACTIONS (3)
  - LYMPH NODE TUBERCULOSIS [None]
  - PULMONARY TUBERCULOSIS [None]
  - WEIGHT DECREASED [None]
